APPROVED DRUG PRODUCT: POSACONAZOLE
Active Ingredient: POSACONAZOLE
Strength: 300MG/16.7ML (18MG/ML)
Dosage Form/Route: SOLUTION;INTRAVENOUS
Application: A214842 | Product #001 | TE Code: AP
Applicant: EUGIA PHARMA SPECIALITIES LTD
Approved: Dec 26, 2023 | RLD: No | RS: No | Type: RX